FAERS Safety Report 14587564 (Version 5)
Quarter: 2018Q2

REPORT INFORMATION
  Report Type: Spontaneous
  Country: CA (occurrence: CA)
  Receive Date: 20180301
  Receipt Date: 20180523
  Transmission Date: 20180711
  Serious: Yes (Other)
  Sender: FDA-Public Use
  Company Number: CA-CELLTRION INC.-2017CA017623

PATIENT

DRUGS (27)
  1. INFLECTRA [Suspect]
     Active Substance: INFLIXIMAB-DYYB
     Indication: CROHN^S DISEASE
     Dosage: 420 MG, CYCLIC (EVERY 0, 2,6 WEEKS, THEN EVERY 8 WEEKS)
     Route: 042
     Dates: start: 20171102
  2. LOPERAMIDE [Concomitant]
     Active Substance: LOPERAMIDE
     Dosage: UNK
     Route: 065
  3. FLOMAX [Concomitant]
     Active Substance: TAMSULOSIN HYDROCHLORIDE
  4. DOCUSATE SODIUM. [Concomitant]
     Active Substance: DOCUSATE SODIUM
  5. INFLECTRA [Suspect]
     Active Substance: INFLIXIMAB-DYYB
     Dosage: 420 MG, CYCLIC(EVERY 0, 2, 6 WEEKS, THEN EVERY 8 WEEKS)
     Route: 042
     Dates: start: 20171116
  6. EFFEXOR XR [Concomitant]
     Active Substance: VENLAFAXINE HYDROCHLORIDE
     Dosage: UNK
     Route: 065
     Dates: start: 20090703
  7. VITAMIN B12 [Concomitant]
     Active Substance: CYANOCOBALAMIN
     Dosage: UNK
     Route: 065
  8. MS IR [Concomitant]
     Active Substance: MORPHINE SULFATE
  9. INFLECTRA [Suspect]
     Active Substance: INFLIXIMAB-DYYB
     Dosage: 5 MG/KG, EVERY 0, 2, 6 WEEKS, THEN EVERY 8 WEEKS
     Route: 042
     Dates: start: 20180306
  10. TAMSULOSIN CR [Concomitant]
     Active Substance: TAMSULOSIN
     Dosage: UNK
     Route: 065
  11. PEGLYTE [Concomitant]
     Active Substance: POLYETHYLENE GLYCOL 3350\POTASSIUM CHLORIDE\SODIUM BICARBONATE\SODIUM CHLORIDE\SODIUM SULFATE
  12. BISACODYL. [Concomitant]
     Active Substance: BISACODYL
  13. DILAUDID [Concomitant]
     Active Substance: HYDROMORPHONE HYDROCHLORIDE
  14. INFLECTRA [Suspect]
     Active Substance: INFLIXIMAB-DYYB
     Dosage: 5 MG/KG, CYCLIC (EVERY 0, 2, 6 WEEKS, THEN EVERY 8 WEEKS)
     Route: 042
     Dates: start: 20180110
  15. HYDROMORPHONE [Concomitant]
     Active Substance: HYDROMORPHONE
  16. PURG ODAN [Concomitant]
  17. CEPHALEXIN                         /00145501/ [Concomitant]
     Active Substance: CEPHALEXIN
  18. ACETAMINOPHEN. [Concomitant]
     Active Substance: ACETAMINOPHEN
     Dosage: UNK
     Route: 065
     Dates: start: 20130624
  19. PENICILLIN VK [Concomitant]
     Active Substance: PENICILLIN V POTASSIUM
  20. AMOXICILLIN. [Concomitant]
     Active Substance: AMOXICILLIN
  21. EURO DOCUSATE C [Concomitant]
  22. SUPEUDOL [Concomitant]
     Active Substance: OXYCODONE HYDROCHLORIDE
  23. VENLAFAXINE XR [Concomitant]
     Active Substance: VENLAFAXINE HYDROCHLORIDE
     Dosage: UNK
     Route: 065
  24. XATRAL [Concomitant]
     Active Substance: ALFUZOSIN
  25. TAMSULOSIN CR [Concomitant]
     Active Substance: TAMSULOSIN
     Dosage: UNK
     Route: 065
  26. AVAMYS [Concomitant]
     Active Substance: FLUTICASONE FUROATE
  27. NAPROXEN. [Concomitant]
     Active Substance: NAPROXEN

REACTIONS (20)
  - Pruritus [Recovering/Resolving]
  - Sleep disorder due to general medical condition, insomnia type [Unknown]
  - Skin cancer [Unknown]
  - Pain in jaw [Unknown]
  - Haemoptysis [Unknown]
  - Somnolence [Unknown]
  - Epistaxis [Unknown]
  - Asthenia [Unknown]
  - Blister [Unknown]
  - Sinusitis [Recovered/Resolved]
  - Rash [Recovered/Resolved]
  - Therapeutic response changed [Unknown]
  - Gait disturbance [Unknown]
  - Productive cough [Unknown]
  - Fatigue [Unknown]
  - Ear disorder [Unknown]
  - Pruritus [Unknown]
  - Arthralgia [Unknown]
  - Incorrect drug administration duration [Unknown]
  - Erythema [Unknown]

NARRATIVE: CASE EVENT DATE: 201712
